FAERS Safety Report 16699945 (Version 1)
Quarter: 2019Q3

REPORT INFORMATION
  Report Type: Spontaneous
  Country: GB (occurrence: GB)
  Receive Date: 20190813
  Receipt Date: 20190813
  Transmission Date: 20191004
  Serious: Yes (Other)
  Sender: FDA-Public Use
  Company Number: GB-TAKEDA-2019TUS047918

PATIENT
  Age: 54 Year
  Sex: Female
  Weight: 72 kg

DRUGS (2)
  1. BRIGATINIB [Suspect]
     Active Substance: BRIGATINIB
     Dosage: 120 MILLIGRAM, QD
     Route: 048
     Dates: start: 20190616, end: 20190628
  2. BRIGATINIB [Suspect]
     Active Substance: BRIGATINIB
     Indication: NON-SMALL CELL LUNG CANCER
     Dosage: 180 MILLIGRAM, QD
     Route: 048
     Dates: start: 20190215, end: 20190530

REACTIONS (5)
  - Skin toxicity [Recovering/Resolving]
  - Photosensitivity reaction [Unknown]
  - Skin exfoliation [Unknown]
  - Erythema [Unknown]
  - Skin necrosis [Unknown]

NARRATIVE: CASE EVENT DATE: 20190601
